FAERS Safety Report 16317103 (Version 3)
Quarter: 2019Q2

REPORT INFORMATION
  Report Type: Spontaneous
  Country: US (occurrence: US)
  Receive Date: 20190515
  Receipt Date: 20190530
  Transmission Date: 20190711
  Serious: Yes (Hospitalization)
  Sender: FDA-Public Use
  Company Number: US-SA-2019SA131691

PATIENT
  Age: 65 Year
  Sex: Female

DRUGS (1)
  1. CABLIVI [Suspect]
     Active Substance: CAPLACIZUMAB-YHDP
     Indication: THROMBOTIC MICROANGIOPATHY
     Dosage: 11 MG
     Route: 058
     Dates: start: 20190502

REACTIONS (5)
  - Hospitalisation [Unknown]
  - Vaginal haemorrhage [Unknown]
  - Platelet count decreased [Not Recovered/Not Resolved]
  - Fall [Unknown]
  - Skin abrasion [Unknown]

NARRATIVE: CASE EVENT DATE: 201905
